FAERS Safety Report 4552988-6 (Version None)
Quarter: 2005Q1

REPORT INFORMATION
  Report Type: 
  Country: None (occurrence: None)
  Receive Date: 20050113
  Receipt Date: 20050107
  Transmission Date: 20050727
  Serious: Yes (Other)
  Sender: FDA-Public Use
  Company Number: 2005007564

PATIENT
  Sex: Female

DRUGS (1)
  1. GEODON [Suspect]
     Indication: ILL-DEFINED DISORDER
     Dosage: 20 MG (20 MG), ORAL
     Route: 048

REACTIONS (8)
  - AORTIC DISORDER [None]
  - ARTERIAL DISORDER [None]
  - CHEST PAIN [None]
  - DEHYDRATION [None]
  - DIZZINESS [None]
  - GASTROENTERITIS VIRAL [None]
  - MUSCLE SPASMS [None]
  - MUSCLE TIGHTNESS [None]
